FAERS Safety Report 16989563 (Version 1)
Quarter: 2019Q4

REPORT INFORMATION
  Report Type: Spontaneous
  Country: US (occurrence: US)
  Receive Date: 20191104
  Receipt Date: 20191104
  Transmission Date: 20200122
  Serious: No
  Sender: FDA-Public Use
  Company Number: US-PFIZER INC-2019474891

PATIENT
  Age: 53 Year
  Sex: Female

DRUGS (3)
  1. CARISOPRODOL. [Concomitant]
     Active Substance: CARISOPRODOL
     Dosage: UNK
  2. LYRICA [Suspect]
     Active Substance: PREGABALIN
     Indication: BACK DISORDER
     Dosage: 1 DF, AS NEEDED
     Route: 048
     Dates: start: 2018
  3. LYRICA [Suspect]
     Active Substance: PREGABALIN
     Indication: PAIN
     Dosage: 75 MG, 1X/DAY
     Route: 048

REACTIONS (4)
  - Intentional product misuse [Not Recovered/Not Resolved]
  - Feeling abnormal [Unknown]
  - Cognitive disorder [Unknown]
  - Somnolence [Unknown]

NARRATIVE: CASE EVENT DATE: 2018
